FAERS Safety Report 5104317-7 (Version None)
Quarter: 2006Q3

REPORT INFORMATION
  Report Type: 
  Country: None (occurrence: None)
  Receive Date: 20060912
  Receipt Date: 20060912
  Transmission Date: 20061208
  Serious: Yes (Hospitalization)
  Sender: FDA-Public Use
  Company Number: None

PATIENT
  Sex: Male

DRUGS (11)
  1. WARFARIN SODIUM [Suspect]
     Indication: ATRIAL FIBRILLATION
     Dosage: 5 MG MON,  2.5 MG REST   DAILY   PO
     Route: 048
  2. CLOPIDOGREL [Suspect]
     Indication: STENT PLACEMENT
     Dosage: 75 MG   DAILY   PO
     Route: 048
     Dates: start: 20050512, end: 20060707
  3. ASPIRIN [Concomitant]
  4. HYDROCHLOROTHIAZIDE [Concomitant]
  5. ATENOLOL [Concomitant]
  6. POTASSIUM CHLORIDE [Concomitant]
  7. LISINOPRIL [Concomitant]
  8. ISOSORBIDE MONONITRATE [Concomitant]
  9. SIMVASTATIN [Concomitant]
  10. NIACIN [Concomitant]
  11. NPH INSULIN [Concomitant]

REACTIONS (1)
  - GASTROINTESTINAL HAEMORRHAGE [None]
